FAERS Safety Report 9828627 (Version 2)
Quarter: 2014Q1

REPORT INFORMATION
  Report Type: Spontaneous
  Country: IT (occurrence: IT)
  Receive Date: 20140117
  Receipt Date: 20140128
  Transmission Date: 20141002
  Serious: Yes (Hospitalization)
  Sender: FDA-Public Use
  Company Number: IT-PFIZER INC-2014011148

PATIENT
  Age: 75 Year
  Sex: Male

DRUGS (10)
  1. TRIATEC [Suspect]
     Dosage: 10 MG, 1X/DAY
     Route: 048
     Dates: start: 20090101, end: 20130823
  2. PLAUNAC [Interacting]
     Dosage: 20 MG, 1X/DAY
     Route: 048
     Dates: start: 20130601, end: 20130823
  3. FUROSEMIDE [Concomitant]
     Dosage: STRENGTH 25 MG
     Route: 048
  4. ATORVASTATIN CALCIUM TRIHYDRATE [Concomitant]
     Dosage: UNK
     Route: 065
  5. GLICLAZIDE [Concomitant]
     Dosage: UNK
     Route: 065
  6. ROCALTROL [Concomitant]
     Dosage: UNK
     Route: 065
  7. TAPAZOLE [Concomitant]
     Dosage: UNK
     Route: 065
  8. INDERAL [Concomitant]
     Dosage: UNK
     Route: 065
  9. LANTUS [Concomitant]
     Dosage: UNK
     Route: 065
  10. HUMALOG [Concomitant]
     Dosage: UNK
     Route: 065

REACTIONS (2)
  - Drug interaction [Unknown]
  - Hyperkalaemia [Unknown]
